FAERS Safety Report 8143774-9 (Version None)
Quarter: 2012Q1

REPORT INFORMATION
  Report Type: 
  Country: None (occurrence: None)
  Receive Date: 20120217
  Receipt Date: 20120208
  Transmission Date: 20120608
  Serious: Yes (Death)
  Sender: FDA-Public Use
  Company Number: PL-JNJFOC-20120205527

PATIENT
  Age: 75 Year
  Sex: Male

DRUGS (2)
  1. SILDENAFIL [Concomitant]
  2. XARELTO [Suspect]
     Indication: ATRIAL FIBRILLATION
     Route: 048
     Dates: start: 20120203, end: 20120206

REACTIONS (7)
  - DEATH [None]
  - CHEST PAIN [None]
  - PLEURAL EFFUSION [None]
  - FEELING ABNORMAL [None]
  - DIARRHOEA [None]
  - RIGHT VENTRICULAR FAILURE [None]
  - CONDITION AGGRAVATED [None]
